FAERS Safety Report 23787022 (Version 1)
Quarter: 2024Q2

REPORT INFORMATION
  Report Type: Spontaneous
  Country: JP (occurrence: JP)
  Receive Date: 20240426
  Receipt Date: 20240426
  Transmission Date: 20240715
  Serious: Yes (Other)
  Sender: FDA-Public Use
  Company Number: JP-VERICEL-JP-VCEL-24-000154

PATIENT
  Age: 92 Year
  Sex: Male

DRUGS (1)
  1. BROMELAINS [Suspect]
     Active Substance: BROMELAINS
     Indication: Thermal burn
     Dosage: 30 GRAM, QD
     Route: 061
     Dates: start: 20240319, end: 20240319

REACTIONS (1)
  - Myocardial infarction [Recovering/Resolving]

NARRATIVE: CASE EVENT DATE: 20240321
